FAERS Safety Report 6758622-9 (Version None)
Quarter: 2010Q2

REPORT INFORMATION
  Report Type: 
  Country: None (occurrence: None)
  Receive Date: 20100607
  Receipt Date: 20100531
  Transmission Date: 20101027
  Serious: Yes (Other)
  Sender: FDA-Public Use
  Company Number: GB-ROCHE-706792

PATIENT

DRUGS (2)
  1. RIBAVIRIN [Suspect]
     Route: 065
  2. INTERFERON ALFA-2B [Suspect]
     Route: 065

REACTIONS (1)
  - PARKINSONISM [None]
